FAERS Safety Report 24609537 (Version 4)
Quarter: 2024Q4

REPORT INFORMATION
  Report Type: Report from Study
  Country: SE (occurrence: SE)
  Receive Date: 20241112
  Receipt Date: 20241124
  Transmission Date: 20250115
  Serious: Yes (Hospitalization, Other)
  Sender: ABBVIE
  Company Number: SE-ABBVIE-5997105

PATIENT
  Age: 77 Year
  Sex: Male

DRUGS (3)
  1. FOSCARBIDOPA\FOSLEVODOPA [Suspect]
     Active Substance: FOSCARBIDOPA\FOSLEVODOPA
     Indication: Parkinson^s disease
     Dosage: DOSE ADJUSTMENTS?FIRST AND LAST ADMIN NOV 2024
     Route: 058
  2. FOSCARBIDOPA\FOSLEVODOPA [Suspect]
     Active Substance: FOSCARBIDOPA\FOSLEVODOPA
     Dosage: LAST ADMIN DATE IN NOV 2024
     Route: 058
     Dates: start: 20241104
  3. FOSCARBIDOPA\FOSLEVODOPA [Suspect]
     Active Substance: FOSCARBIDOPA\FOSLEVODOPA
     Dosage: FIRST ADMIN DATE NOV 2024
     Route: 058
     Dates: end: 20241111

REACTIONS (9)
  - Altered state of consciousness [Unknown]
  - Peripheral swelling [Unknown]
  - Decubitus ulcer [Unknown]
  - Malaise [Unknown]
  - Wound infection [Unknown]
  - Feeling abnormal [Unknown]
  - Hospitalisation [Unknown]
  - Wound secretion [Unknown]
  - Abscess [Unknown]

NARRATIVE: CASE EVENT DATE: 20240101
